FAERS Safety Report 14314257 (Version 2)
Quarter: 2018Q1

REPORT INFORMATION
  Report Type: Report from Study
  Country: US (occurrence: US)
  Receive Date: 20171221
  Receipt Date: 20180131
  Transmission Date: 20180509
  Serious: Yes (Death, Life-Threatening, Hospitalization, Other)
  Sender: FDA-Public Use
  Company Number: US-GILEAD-2017-0292221

PATIENT
  Age: 52 Year
  Sex: Female
  Weight: 79 kg

DRUGS (7)
  1. AMBRISENTAN [Suspect]
     Active Substance: AMBRISENTAN
     Indication: PULMONARY HYPERTENSION
     Dosage: 10 MG, QD
     Route: 048
     Dates: start: 20170808, end: 20171114
  2. AMBRISENTAN [Suspect]
     Active Substance: AMBRISENTAN
     Indication: SYSTEMIC SCLERODERMA
  3. SILDENAFIL. [Concomitant]
     Active Substance: SILDENAFIL
  4. AMBRISENTAN [Suspect]
     Active Substance: AMBRISENTAN
     Indication: SCLERODERMA
  5. ORENITRAM [Concomitant]
     Active Substance: TREPROSTINIL
  6. BUMEX [Concomitant]
     Active Substance: BUMETANIDE
  7. ALDACTONE [Concomitant]
     Active Substance: SPIRONOLACTONE

REACTIONS (5)
  - Cardiac failure congestive [Recovered/Resolved]
  - Fluid retention [Not Recovered/Not Resolved]
  - Treatment noncompliance [Unknown]
  - Right ventricular failure [Fatal]
  - Respiratory failure [Unknown]

NARRATIVE: CASE EVENT DATE: 20170822
